FAERS Safety Report 8837820 (Version 2)
Quarter: 2013Q1

REPORT INFORMATION
  Report Type: Spontaneous
  Country: US (occurrence: US)
  Receive Date: 20121012
  Receipt Date: 20130222
  Transmission Date: 20140127
  Serious: No
  Sender: FDA-Public Use
  Company Number: PHEH2012US013375

PATIENT
  Sex: Female

DRUGS (1)
  1. TASIGNA [Suspect]
     Indication: CHRONIC MYELOID LEUKAEMIA
     Dosage: 300 MG, BID
     Route: 048
     Dates: start: 20120707

REACTIONS (7)
  - Dysphagia [Unknown]
  - Drug prescribing error [Unknown]
  - Fatigue [Unknown]
  - Alopecia [Unknown]
  - Constipation [Unknown]
  - Rash pruritic [Unknown]
  - Labelled drug-food interaction medication error [Unknown]
